FAERS Safety Report 6970356-4 (Version None)
Quarter: 2010Q3

REPORT INFORMATION
  Report Type: 
  Country: None (occurrence: None)
  Receive Date: 20100908
  Receipt Date: 20090626
  Transmission Date: 20110219
  Serious: Yes (Hospitalization)
  Sender: FDA-Public Use
  Company Number: FI-BAXTER-2009BH007866

PATIENT
  Sex: Male
  Weight: 85 kg

DRUGS (3)
  1. FEIBA [Suspect]
     Indication: PROPHYLAXIS
     Route: 065
     Dates: start: 20090427, end: 20090427
  2. FEIBA [Suspect]
     Route: 065
     Dates: start: 20090428
  3. FEIBA [Suspect]
     Dates: start: 20090501, end: 20090501

REACTIONS (3)
  - ARTHRALGIA [None]
  - ARTHROPATHY [None]
  - HAEMORRHAGE [None]
